FAERS Safety Report 18769064 (Version 2)
Quarter: 2021Q2

REPORT INFORMATION
  Report Type: Spontaneous
  Country: US (occurrence: US)
  Receive Date: 20210121
  Receipt Date: 20210510
  Transmission Date: 20210717
  Serious: No
  Sender: FDA-Public Use
  Company Number: US-PFIZER INC-2021035901

PATIENT
  Age: 66 Year
  Sex: Female
  Weight: 79.37 kg

DRUGS (2)
  1. INLYTA [Suspect]
     Active Substance: AXITINIB
     Dosage: 3 MG, 2X/DAY (EVERY 12 HOURS/ 3 MG IN AM AND 3 MG IN PM)
     Route: 048
     Dates: start: 20210211
  2. INLYTA [Suspect]
     Active Substance: AXITINIB
     Indication: RENAL CANCER
     Dosage: 5 MG, 2X/DAY (EVERY 12 HOURS)
     Route: 048
     Dates: start: 20201230

REACTIONS (4)
  - Throat lesion [Not Recovered/Not Resolved]
  - Glossodynia [Unknown]
  - Dysphagia [Not Recovered/Not Resolved]
  - Dysphonia [Not Recovered/Not Resolved]
